FAERS Safety Report 6719075-X (Version None)
Quarter: 2010Q2

REPORT INFORMATION
  Report Type: 
  Country: None (occurrence: None)
  Receive Date: 20100510
  Receipt Date: 20100510
  Transmission Date: 20101027
  Serious: Yes (Disabling, Other)
  Sender: FDA-Public Use
  Company Number: None

PATIENT
  Age: 90 Year
  Sex: Female
  Weight: 83.4619 kg

DRUGS (2)
  1. FORTICAL [Suspect]
     Dosage: ONE SPRAY ALT NARE Q DAY
     Dates: start: 20091101, end: 20100201
  2. FORTICAL [Suspect]
     Dosage: ONE SPRAY ALT NARE Q DAY
     Dates: start: 20070101

REACTIONS (1)
  - AGEUSIA [None]
